FAERS Safety Report 6628875-6 (Version None)
Quarter: 2010Q1

REPORT INFORMATION
  Report Type: 
  Country: None (occurrence: None)
  Receive Date: 20100311
  Receipt Date: 20100301
  Transmission Date: 20100710
  Serious: Yes (Hospitalization)
  Sender: FDA-Public Use
  Company Number: AU-ASTRAZENECA-2010SE08584

PATIENT
  Age: 367 Month
  Sex: Female

DRUGS (7)
  1. QUETIAPINE [Suspect]
     Indication: PSYCHOTIC BEHAVIOUR
     Route: 048
  2. DULOXETINE HYDROCHLORIDE [Suspect]
     Indication: DEPRESSION
     Route: 048
  3. CLOZAPINE [Suspect]
     Indication: PSYCHOTIC BEHAVIOUR
     Route: 048
  4. CLOPIXOL [Suspect]
     Indication: PSYCHOTIC BEHAVIOUR
     Route: 030
  5. UNSPECIFIED ILLICIT DRUGS [Suspect]
  6. FOLATE [Concomitant]
     Indication: PROPHYLAXIS OF NEURAL TUBE DEFECT
     Route: 048
  7. FISH OIL [Concomitant]
     Indication: ATHEROSCLEROSIS PROPHYLAXIS
     Route: 048

REACTIONS (2)
  - ABORTION SPONTANEOUS [None]
  - DRUG EXPOSURE DURING PREGNANCY [None]
